FAERS Safety Report 9846606 (Version 2)
Quarter: 2014Q1

REPORT INFORMATION
  Report Type: Spontaneous
  Country: US (occurrence: US)
  Receive Date: 20140127
  Receipt Date: 20140321
  Transmission Date: 20141002
  Serious: Yes (Other)
  Sender: FDA-Public Use
  Company Number: US-GLAXOSMITHKLINE-A1058314A

PATIENT
  Age: 81 Year
  Sex: Female

DRUGS (2)
  1. FLONASE [Suspect]
     Indication: NASAL CONGESTION
     Route: 045
     Dates: start: 20090119
  2. SEREVENT [Concomitant]

REACTIONS (5)
  - Neoplasm malignant [Unknown]
  - Myocardial infarction [Unknown]
  - Chemotherapy [Unknown]
  - Renal disorder [Unknown]
  - Chronic obstructive pulmonary disease [Unknown]
